FAERS Safety Report 4941905-2 (Version None)
Quarter: 2006Q1

REPORT INFORMATION
  Report Type: 
  Country: None (occurrence: None)
  Receive Date: 20060308
  Receipt Date: 20060224
  Transmission Date: 20060701
  Serious: Yes (Other)
  Sender: FDA-Public Use
  Company Number: 2006-139169-NL

PATIENT
  Age: 2 Day
  Sex: 0

DRUGS (5)
  1. REMERON [Suspect]
  2. TOPAMAX [Suspect]
  3. LEXAPRO [Suspect]
  4. ABILIFY [Suspect]
  5. ZYPREXA [Suspect]

REACTIONS (6)
  - DRUG EXPOSURE DURING PREGNANCY [None]
  - DRUG EXPOSURE VIA BREAST MILK [None]
  - FEEDING DISORDER NEONATAL [None]
  - NEONATAL DISORDER [None]
  - NERVOUS SYSTEM DISORDER [None]
  - SEDATION [None]
